FAERS Safety Report 21843941 (Version 4)
Quarter: 2023Q2

REPORT INFORMATION
  Report Type: Spontaneous
  Country: BR (occurrence: BR)
  Receive Date: 20230110
  Receipt Date: 20230525
  Transmission Date: 20230721
  Serious: Yes (Hospitalization, Other)
  Sender: FDA-Public Use
  Company Number: BR-SA-SAC20230105001127

PATIENT

DRUGS (1)
  1. LARONIDASE [Suspect]
     Active Substance: LARONIDASE
     Indication: Mucopolysaccharidosis I
     Dosage: 4 DF, QW
     Route: 042
     Dates: start: 20221001

REACTIONS (18)
  - Central nervous system infection [Recovering/Resolving]
  - Cardiac valve disease [Recovering/Resolving]
  - Decreased appetite [Recovering/Resolving]
  - Somnolence [Recovering/Resolving]
  - CSF volume increased [Recovering/Resolving]
  - Hypertension [Recovering/Resolving]
  - Vomiting [Recovering/Resolving]
  - Hydrocephalus [Recovering/Resolving]
  - Bacterial infection [Unknown]
  - Meningitis [Recovering/Resolving]
  - Pyrexia [Recovering/Resolving]
  - Vein rupture [Unknown]
  - Infusion site swelling [Unknown]
  - Gait disturbance [Recovering/Resolving]
  - Condition aggravated [Recovering/Resolving]
  - Bone disorder [Recovering/Resolving]
  - Rhinorrhoea [Recovering/Resolving]
  - Cardiac disorder [Recovering/Resolving]

NARRATIVE: CASE EVENT DATE: 20221201
